FAERS Safety Report 6140656-9 (Version None)
Quarter: 2009Q2

REPORT INFORMATION
  Report Type: 
  Country: None (occurrence: None)
  Receive Date: 20090402
  Receipt Date: 20090310
  Transmission Date: 20091009
  Serious: No
  Sender: FDA-Public Use
  Company Number: US-B.I. PHARMACEUTICALS,INC./RIDGEFIELD-2009-BP-03121BP

PATIENT
  Age: 85 Year
  Sex: Female

DRUGS (1)
  1. FLOMAX [Suspect]
     Indication: POLLAKIURIA
     Dosage: .4MG
     Route: 048
     Dates: start: 20090101

REACTIONS (4)
  - ANOREXIA [None]
  - DYSURIA [None]
  - FATIGUE [None]
  - PAIN [None]
